FAERS Safety Report 5747719-8 (Version None)
Quarter: 2008Q2

REPORT INFORMATION
  Report Type: 
  Country: None (occurrence: None)
  Receive Date: 20080523
  Receipt Date: 20080519
  Transmission Date: 20081010
  Serious: Yes (Hospitalization, Other)
  Sender: FDA-Public Use
  Company Number: US-BRISTOL-MYERS SQUIBB COMPANY-14197115

PATIENT
  Age: 48 Year
  Sex: Male

DRUGS (5)
  1. ARIPIPRAZOLE [Suspect]
  2. COGENTIN [Suspect]
  3. DEPAKOTE ER [Suspect]
  4. KLONOPIN [Suspect]
  5. DIPHENHYDRAMINE HCL [Suspect]

REACTIONS (8)
  - CEREBRAL HYGROMA [None]
  - CONVULSION [None]
  - DIABETIC HYPEROSMOLAR COMA [None]
  - EPISTAXIS [None]
  - FALL [None]
  - LACERATION [None]
  - MUSCLE CONTRACTIONS INVOLUNTARY [None]
  - TREMOR [None]
